FAERS Safety Report 7460572-X (Version None)
Quarter: 2011Q2

REPORT INFORMATION
  Report Type: 
  Country: None (occurrence: None)
  Receive Date: 20110505
  Receipt Date: 20110428
  Transmission Date: 20111010
  Serious: Yes (Hospitalization)
  Sender: FDA-Public Use
  Company Number: US-MYLANLABS-2011S1008922

PATIENT
  Age: 60 Year
  Sex: Female

DRUGS (9)
  1. HYDROCHLOROTHIAZIDE [Suspect]
  2. PROCARDIA /05503602/ [Concomitant]
  3. ZOLPIDEM TARTRATE [Concomitant]
  4. NASONEX [Concomitant]
  5. CARAFATE [Concomitant]
  6. ONGLYZA [Suspect]
     Indication: DIABETES MELLITUS
     Dates: start: 20100401, end: 20100729
  7. LISINOPRIL [Concomitant]
  8. IMURAN [Suspect]
  9. PRILOSEC [Concomitant]

REACTIONS (3)
  - RENAL FAILURE ACUTE [None]
  - DEHYDRATION [None]
  - PANCREATITIS [None]
